FAERS Safety Report 16628707 (Version 1)
Quarter: 2019Q3

REPORT INFORMATION
  Report Type: Spontaneous
  Country: US (occurrence: US)
  Receive Date: 20190725
  Receipt Date: 20190725
  Transmission Date: 20191004
  Serious: No
  Sender: FDA-Public Use
  Company Number: US-009507513-1907USA013441

PATIENT
  Sex: Female

DRUGS (11)
  1. DOXYCYCLINE. [Concomitant]
     Active Substance: DOXYCYCLINE
  2. ESTRADIOL. [Concomitant]
     Active Substance: ESTRADIOL
  3. MENOPUR [Concomitant]
     Active Substance: FOLLITROPIN\LUTEINIZING HORMONE
  4. GANIRELIX ACETATE INJECTION [Suspect]
     Active Substance: GANIRELIX ACETATE
     Indication: INFERTILITY FEMALE
     Dosage: 250 MICROGRAM, AS REQUIRED
     Route: 058
     Dates: start: 20140211
  5. FOLLISTIM [Concomitant]
     Active Substance: FOLLITROPIN
  6. PROGESTERONE. [Suspect]
     Active Substance: PROGESTERONE
     Dosage: UNK
  7. METHYLPREDNISOLONE. [Concomitant]
     Active Substance: METHYLPREDNISOLONE
  8. NOVAREL [Concomitant]
     Active Substance: CHORIOGONADOTROPIN ALFA
  9. ASPIRIN. [Concomitant]
     Active Substance: ASPIRIN
  10. ENDOMETRIN [Concomitant]
     Active Substance: PROGESTERONE
  11. DIAZEPAM. [Concomitant]
     Active Substance: DIAZEPAM

REACTIONS (1)
  - Rash [Unknown]
